FAERS Safety Report 21005461 (Version 1)
Quarter: 2022Q2

REPORT INFORMATION
  Report Type: Spontaneous
  Country: ES (occurrence: ES)
  Receive Date: 20220624
  Receipt Date: 20220624
  Transmission Date: 20220721
  Serious: Yes (Other)
  Sender: FDA-Public Use
  Company Number: ES-JNJFOC-20220603872

PATIENT
  Age: 54 Year
  Sex: Male

DRUGS (15)
  1. STELARA [Suspect]
     Active Substance: USTEKINUMAB
     Indication: Crohn^s disease
     Route: 058
     Dates: start: 201710, end: 201805
  2. STELARA [Suspect]
     Active Substance: USTEKINUMAB
  3. VEDOLIZUMAB [Suspect]
     Active Substance: VEDOLIZUMAB
     Route: 065
  4. OMEPRAZOLE [Concomitant]
     Active Substance: OMEPRAZOLE
  5. SPIRONOLACTONE [Concomitant]
     Active Substance: SPIRONOLACTONE
  6. PREDNISONE [Concomitant]
     Active Substance: PREDNISONE
  7. BETAHISTINE [Concomitant]
     Active Substance: BETAHISTINE
  8. ATORVASTATIN [Concomitant]
     Active Substance: ATORVASTATIN
  9. TRAZODONE HYDROCHLORIDE [Concomitant]
     Active Substance: TRAZODONE HYDROCHLORIDE
  10. TAMSULOSIN [Concomitant]
     Active Substance: TAMSULOSIN
  11. LOSARTAN [Concomitant]
     Active Substance: LOSARTAN
  12. CALCIFEDIOL [Concomitant]
     Active Substance: CALCIFEDIOL
  13. BARNIDIPINE [Concomitant]
     Active Substance: BARNIDIPINE
  14. LORAZEPAM [Concomitant]
     Active Substance: LORAZEPAM
  15. AZELASTINE [Concomitant]
     Active Substance: AZELASTINE

REACTIONS (2)
  - Focal segmental glomerulosclerosis [Not Recovered/Not Resolved]
  - Drug ineffective [Unknown]

NARRATIVE: CASE EVENT DATE: 20180201
